FAERS Safety Report 11372056 (Version 7)
Quarter: 2015Q4

REPORT INFORMATION
  Report Type: Report from Study
  Country: BE (occurrence: BE)
  Receive Date: 20150812
  Receipt Date: 20151026
  Transmission Date: 20160304
  Serious: Yes (Hospitalization)
  Sender: FDA-Public Use
  Company Number: BE-ABBVIE-15P-013-1441903-00

PATIENT
  Sex: Male

DRUGS (7)
  1. DUODOPA [Suspect]
     Active Substance: CARBIDOPA\LEVODOPA
     Indication: PARKINSON^S DISEASE
     Dosage: AM= 5ML; CD=3.2ML/HR DURING 16HRS; ED=1.5ML
     Route: 050
     Dates: start: 20150330, end: 20150402
  2. DUODOPA [Suspect]
     Active Substance: CARBIDOPA\LEVODOPA
     Dosage: AM=9ML; CD=4.2ML/HR DURING 16HRS; ED=3.5ML
     Route: 050
     Dates: start: 20150803
  3. DUODOPA [Suspect]
     Active Substance: CARBIDOPA\LEVODOPA
     Dosage: AM=9ML; CD=4.2ML/HR DURING 16HRS; ED=3.5ML
     Route: 050
     Dates: start: 20150805, end: 20150811
  4. DUODOPA [Suspect]
     Active Substance: CARBIDOPA\LEVODOPA
     Dosage: DOSES CONTINUOUSLY MONITORED AND ADAPTED.
     Route: 050
     Dates: start: 20150402, end: 20150803
  5. DUODOPA [Suspect]
     Active Substance: CARBIDOPA\LEVODOPA
     Dosage: AM = 9 ML, CD = 4.2 ML/H DURING 16H, ED = 3.5 ML
     Route: 050
     Dates: start: 20150811, end: 20150820
  6. DUODOPA [Suspect]
     Active Substance: CARBIDOPA\LEVODOPA
     Dosage: AM = 7 ML, CD = 4.2 ML/H DURING 16H, ED = 2 ML
     Route: 050
     Dates: start: 20150820
  7. PROLOPA [Concomitant]
     Active Substance: BENSERAZIDE\LEVODOPA
     Indication: PRODUCT USED FOR UNKNOWN INDICATION
     Dosage: FORM STRENGTH: 100MG/25MG

REACTIONS (5)
  - Confusional state [Unknown]
  - Mobility decreased [Recovering/Resolving]
  - Unintentional medical device removal [Unknown]
  - Urinary tract infection [Unknown]
  - Anaemia [Not Recovered/Not Resolved]
